FAERS Safety Report 9706124 (Version 2)
Quarter: 2013Q4

REPORT INFORMATION
  Report Type: Spontaneous
  Country: US (occurrence: US)
  Receive Date: 20131124
  Receipt Date: 20131124
  Transmission Date: 20140711
  Serious: Yes (Hospitalization)
  Sender: FDA-Public Use
  Company Number: US-SANOFI-AVENTIS-2012SA088298

PATIENT
  Age: 64 Year
  Sex: Female
  Weight: 84 kg

DRUGS (17)
  1. PLAVIX [Suspect]
     Indication: ACUTE CORONARY SYNDROME
     Route: 048
     Dates: start: 20121102, end: 20121102
  2. ASPIRIN [Suspect]
     Indication: ACUTE CORONARY SYNDROME
     Route: 048
     Dates: start: 2009, end: 20121031
  3. ASPIRIN [Suspect]
     Indication: ACUTE CORONARY SYNDROME
     Route: 048
     Dates: start: 20121101, end: 20121101
  4. ASPIRIN [Suspect]
     Indication: ACUTE CORONARY SYNDROME
     Route: 048
     Dates: start: 20121102, end: 20121102
  5. ASPIRIN [Suspect]
     Indication: ACUTE CORONARY SYNDROME
     Route: 048
     Dates: start: 20121103
  6. OTAMIXABAN [Suspect]
     Indication: ACUTE CORONARY SYNDROME
     Route: 042
     Dates: start: 20121102, end: 20121102
  7. PROZAC [Concomitant]
     Dates: start: 2011, end: 20121101
  8. LOPID [Concomitant]
     Dates: start: 2011
  9. PRAVACOL [Concomitant]
     Dates: start: 201207
  10. METOPROLOL [Concomitant]
     Dates: start: 2011, end: 20121031
  11. POTASSIUM CHLORIDE [Concomitant]
     Dates: start: 201207
  12. AMLODIPINE BESILATE [Concomitant]
     Dates: start: 2011, end: 20121101
  13. MULTIVITAMINS [Concomitant]
     Dosage: DOSE:1 UNIT(S)
     Dates: start: 2008, end: 20121031
  14. TYLENOL [Concomitant]
     Dates: start: 20121102, end: 20121104
  15. DILAUDID [Concomitant]
     Dates: start: 20121102, end: 20121107
  16. COREG [Concomitant]
     Dates: start: 20121102, end: 20121102
  17. LISINOPRIL [Concomitant]
     Dates: start: 20121102, end: 20121102

REACTIONS (1)
  - Catheter site haematoma [Recovered/Resolved]
